FAERS Safety Report 8718013 (Version 2)
Quarter: 2012Q4

REPORT INFORMATION
  Report Type: Report from Study
  Country: BR (occurrence: BR)
  Receive Date: 20120810
  Receipt Date: 20121010
  Transmission Date: 20130627
  Serious: Yes (Other)
  Sender: FDA-Public Use
  Company Number: BR-ROCHE-717229

PATIENT
  Age: 49 Year
  Sex: Female
  Weight: 62 kg

DRUGS (12)
  1. MABTHERA [Suspect]
     Indication: RHEUMATOID ARTHRITIS
     Route: 065
     Dates: start: 20100601, end: 20120624
  2. GESTODENE [Concomitant]
     Indication: CONTRACEPTION
     Dosage: DRUG NAME REPORTED AS GINERA
     Route: 065
  3. VALERIANE [Concomitant]
     Indication: SEDATIVE THERAPY
  4. IBUPROFEN [Concomitant]
     Route: 065
  5. DAFORIN [Concomitant]
     Route: 065
  6. SILYMARIN [Concomitant]
     Route: 065
  7. METHIONINE [Concomitant]
     Route: 065
  8. COLLAGEN [Concomitant]
     Indication: UNEVALUABLE EVENT
  9. GELATIN [Concomitant]
     Indication: UNEVALUABLE EVENT
  10. RISEDROSS [Concomitant]
     Route: 065
  11. SIMVASTATIN [Concomitant]
     Route: 065
  12. GYNERA [Concomitant]

REACTIONS (14)
  - Depression [Recovered/Resolved]
  - Urticaria [Recovered/Resolved]
  - Skin discolouration [Recovered/Resolved]
  - Lip discolouration [Recovered/Resolved]
  - Nasal discomfort [Recovered/Resolved]
  - Throat irritation [Recovered/Resolved]
  - Gingival pruritus [Recovered/Resolved]
  - Gingival pain [Recovered/Resolved]
  - Somnolence [Recovered/Resolved]
  - Agitation [Recovered/Resolved]
  - Tremor [Recovered/Resolved]
  - Malaise [Recovered/Resolved]
  - Hypersensitivity [Unknown]
  - Cough [Not Recovered/Not Resolved]
